FAERS Safety Report 7906160-X (Version None)
Quarter: 2011Q4

REPORT INFORMATION
  Report Type: 
  Country: None (occurrence: None)
  Receive Date: 20111110
  Receipt Date: 20111031
  Transmission Date: 20120403
  Serious: Yes (Hospitalization, Other)
  Sender: FDA-Public Use
  Company Number: US-BAYER-2011-026832

PATIENT
  Age: 40 Year
  Sex: Female
  Weight: 102 kg

DRUGS (1)
  1. YASMIN [Suspect]
     Dosage: UNK
     Route: 048
     Dates: start: 20070201, end: 20070501

REACTIONS (4)
  - PAIN [None]
  - CHOLECYSTITIS CHRONIC [None]
  - INJURY [None]
  - GALLBLADDER PAIN [None]
